APPROVED DRUG PRODUCT: DEXMEDETOMIDINE HYDROCHLORIDE
Active Ingredient: DEXMEDETOMIDINE HYDROCHLORIDE
Strength: EQ 1MG BASE/10ML (EQ 100MCG BASE/ML)
Dosage Form/Route: SOLUTION;INTRAVENOUS
Application: A218112 | Product #002 | TE Code: AP
Applicant: SOMERSET THERAPEUTICS LLC
Approved: Sep 24, 2024 | RLD: No | RS: No | Type: RX